FAERS Safety Report 8551452-7 (Version None)
Quarter: 2012Q3

REPORT INFORMATION
  Report Type: 
  Country: None (occurrence: None)
  Receive Date: 20120730
  Receipt Date: 20120130
  Transmission Date: 20120928
  Serious: No
  Sender: FDA-Public Use
  Company Number: US-ALLERGAN-1201429US

PATIENT
  Age: 49 Year
  Sex: Female

DRUGS (2)
  1. LATISSE [Suspect]
     Indication: HYPOTRICHOSIS
     Dosage: 1.5 GTT, QHS
     Route: 061
     Dates: start: 20120101
  2. WETTING DROPS FOR CONTACT LENSES [Concomitant]
     Indication: PRODUCT USED FOR UNKNOWN INDICATION
     Dosage: UNK
     Route: 047

REACTIONS (3)
  - INCORRECT DOSE ADMINISTERED [None]
  - TRICHORRHEXIS [None]
  - MADAROSIS [None]
